FAERS Safety Report 5734485-5 (Version None)
Quarter: 2008Q2

REPORT INFORMATION
  Report Type: 
  Country: None (occurrence: None)
  Receive Date: 20080508
  Receipt Date: 20080508
  Transmission Date: 20081010
  Serious: Yes (Life-Threatening, Disabling)
  Sender: FDA-Public Use
  Company Number: None

PATIENT
  Age: 59 Year
  Sex: Female
  Weight: 71.1 kg

DRUGS (1)
  1. MORPHINE [Suspect]
     Indication: RESTLESSNESS
     Dosage: 3 MG X1 DOSE IV BOLUS
     Route: 040
     Dates: start: 20070311, end: 20070321

REACTIONS (1)
  - CARDIAC ARREST [None]
